FAERS Safety Report 26057887 (Version 2)
Quarter: 2025Q4

REPORT INFORMATION
  Report Type: Spontaneous
  Country: EU (occurrence: EU)
  Receive Date: 20251118
  Receipt Date: 20251125
  Transmission Date: 20260118
  Serious: Yes (Hospitalization, Other)
  Sender: BAXTER
  Company Number: EU-BAXTER-2025BAX024153

PATIENT
  Sex: Male

DRUGS (132)
  1. WATER [Suspect]
     Active Substance: WATER
     Indication: Parenteral nutrition
     Dosage: 180 ML
     Route: 065
  2. WATER [Suspect]
     Active Substance: WATER
     Dosage: 180 ML
     Route: 065
  3. WATER [Suspect]
     Active Substance: WATER
     Dosage: 180 ML
     Route: 065
  4. WATER [Suspect]
     Active Substance: WATER
     Dosage: 180 ML
     Route: 065
  5. WATER [Suspect]
     Active Substance: WATER
     Dosage: 180 ML
     Route: 065
  6. WATER [Suspect]
     Active Substance: WATER
     Dosage: 180 ML
     Route: 065
  7. WATER [Suspect]
     Active Substance: WATER
     Dosage: 180 ML
     Route: 065
  8. WATER [Suspect]
     Active Substance: WATER
     Dosage: 180 ML
     Route: 065
  9. WATER [Suspect]
     Active Substance: WATER
     Dosage: 180 ML
     Route: 065
  10. AMINO ACIDS, SOURCE UNSPECIFIED [Suspect]
     Active Substance: AMINO ACIDS, SOURCE UNSPECIFIED
     Indication: Parenteral nutrition
     Dosage: 252 ML
     Route: 065
  11. AMINO ACIDS, SOURCE UNSPECIFIED [Suspect]
     Active Substance: AMINO ACIDS, SOURCE UNSPECIFIED
     Dosage: 252 ML
     Route: 065
  12. AMINO ACIDS, SOURCE UNSPECIFIED [Suspect]
     Active Substance: AMINO ACIDS, SOURCE UNSPECIFIED
     Dosage: 252 ML
     Route: 065
  13. AMINO ACIDS, SOURCE UNSPECIFIED [Suspect]
     Active Substance: AMINO ACIDS, SOURCE UNSPECIFIED
     Dosage: 252 ML
     Route: 065
  14. AMINO ACIDS, SOURCE UNSPECIFIED [Suspect]
     Active Substance: AMINO ACIDS, SOURCE UNSPECIFIED
     Dosage: 252 ML
     Route: 065
  15. AMINO ACIDS, SOURCE UNSPECIFIED [Suspect]
     Active Substance: AMINO ACIDS, SOURCE UNSPECIFIED
     Dosage: 252 ML
     Route: 065
  16. AMINO ACIDS, SOURCE UNSPECIFIED [Suspect]
     Active Substance: AMINO ACIDS, SOURCE UNSPECIFIED
     Dosage: 252 ML
     Route: 065
  17. AMINO ACIDS, SOURCE UNSPECIFIED [Suspect]
     Active Substance: AMINO ACIDS, SOURCE UNSPECIFIED
     Dosage: 252 ML
     Route: 065
  18. AMINO ACIDS, SOURCE UNSPECIFIED [Suspect]
     Active Substance: AMINO ACIDS, SOURCE UNSPECIFIED
     Dosage: 252 ML
     Route: 065
  19. OLIVE OIL\SOYBEAN OIL [Suspect]
     Active Substance: OLIVE OIL\SOYBEAN OIL
     Indication: Parenteral nutrition
     Dosage: 172 ML
     Route: 065
  20. OLIVE OIL\SOYBEAN OIL [Suspect]
     Active Substance: OLIVE OIL\SOYBEAN OIL
     Dosage: 172 ML
     Route: 065
  21. OLIVE OIL\SOYBEAN OIL [Suspect]
     Active Substance: OLIVE OIL\SOYBEAN OIL
     Dosage: 172 ML
     Route: 065
  22. OLIVE OIL\SOYBEAN OIL [Suspect]
     Active Substance: OLIVE OIL\SOYBEAN OIL
     Dosage: 172 ML
     Route: 065
  23. OLIVE OIL\SOYBEAN OIL [Suspect]
     Active Substance: OLIVE OIL\SOYBEAN OIL
     Dosage: 172 ML
     Route: 065
  24. OLIVE OIL\SOYBEAN OIL [Suspect]
     Active Substance: OLIVE OIL\SOYBEAN OIL
     Dosage: 172 ML
     Route: 065
  25. OLIVE OIL\SOYBEAN OIL [Suspect]
     Active Substance: OLIVE OIL\SOYBEAN OIL
     Dosage: 172 ML
     Route: 065
  26. OLIVE OIL\SOYBEAN OIL [Suspect]
     Active Substance: OLIVE OIL\SOYBEAN OIL
     Dosage: 172 ML
     Route: 065
  27. OLIVE OIL\SOYBEAN OIL [Suspect]
     Active Substance: OLIVE OIL\SOYBEAN OIL
     Dosage: 172 ML
     Route: 065
  28. CERNEVIT [Suspect]
     Active Substance: VITAMINS
     Indication: Parenteral nutrition
     Dosage: 7.6 ML
     Route: 065
  29. CERNEVIT [Suspect]
     Active Substance: VITAMINS
     Dosage: 7.6 ML
     Route: 065
  30. CERNEVIT [Suspect]
     Active Substance: VITAMINS
     Dosage: 7.6 ML
     Route: 065
  31. CERNEVIT [Suspect]
     Active Substance: VITAMINS
     Dosage: 7.6 ML
     Route: 065
  32. CERNEVIT [Suspect]
     Active Substance: VITAMINS
     Dosage: 7.6 ML
     Route: 065
  33. CERNEVIT [Suspect]
     Active Substance: VITAMINS
     Dosage: 7.6 ML
     Route: 065
  34. CERNEVIT [Suspect]
     Active Substance: VITAMINS
     Dosage: 7.6 ML
     Route: 065
  35. CERNEVIT [Suspect]
     Active Substance: VITAMINS
     Dosage: 7.6 ML
     Route: 065
  36. CERNEVIT [Suspect]
     Active Substance: VITAMINS
     Dosage: 7.6 ML
     Route: 065
  37. DEXTROSE [Suspect]
     Active Substance: DEXTROSE MONOHYDRATE
     Indication: Parenteral nutrition
     Dosage: 323 ML
     Route: 065
  38. DEXTROSE [Suspect]
     Active Substance: DEXTROSE MONOHYDRATE
     Dosage: 323 ML
     Route: 065
  39. DEXTROSE [Suspect]
     Active Substance: DEXTROSE MONOHYDRATE
     Dosage: 323 ML
     Route: 065
  40. DEXTROSE [Suspect]
     Active Substance: DEXTROSE MONOHYDRATE
     Dosage: 323 ML
     Route: 065
  41. DEXTROSE [Suspect]
     Active Substance: DEXTROSE MONOHYDRATE
     Dosage: 323 ML
     Route: 065
  42. DEXTROSE [Suspect]
     Active Substance: DEXTROSE MONOHYDRATE
     Dosage: 323 ML
     Route: 065
  43. DEXTROSE [Suspect]
     Active Substance: DEXTROSE MONOHYDRATE
     Dosage: 323 ML
     Route: 065
  44. DEXTROSE [Suspect]
     Active Substance: DEXTROSE MONOHYDRATE
     Dosage: 323 ML
     Route: 065
  45. DEXTROSE [Suspect]
     Active Substance: DEXTROSE MONOHYDRATE
     Dosage: 323 ML
     Route: 065
  46. DEXTROSE [Suspect]
     Active Substance: DEXTROSE MONOHYDRATE
     Dosage: 323 ML
     Route: 065
  47. DEXTROSE [Suspect]
     Active Substance: DEXTROSE MONOHYDRATE
     Dosage: 323 ML
     Route: 065
  48. DEXTROSE [Suspect]
     Active Substance: DEXTROSE MONOHYDRATE
     Dosage: 323 ML
     Route: 065
  49. DEXTROSE [Suspect]
     Active Substance: DEXTROSE MONOHYDRATE
     Dosage: 323 ML
     Route: 065
  50. DEXTROSE [Suspect]
     Active Substance: DEXTROSE MONOHYDRATE
     Dosage: 323 ML
     Route: 065
  51. CALCIUM GLUCONATE [Suspect]
     Active Substance: CALCIUM GLUCONATE
     Indication: Parenteral nutrition
     Dosage: 92 ML
     Route: 065
  52. CALCIUM GLUCONATE [Suspect]
     Active Substance: CALCIUM GLUCONATE
     Dosage: 92 ML
     Route: 065
  53. CALCIUM GLUCONATE [Suspect]
     Active Substance: CALCIUM GLUCONATE
     Dosage: 92 ML
     Route: 065
  54. CALCIUM GLUCONATE [Suspect]
     Active Substance: CALCIUM GLUCONATE
     Dosage: 92 ML
     Route: 065
  55. CALCIUM GLUCONATE [Suspect]
     Active Substance: CALCIUM GLUCONATE
     Dosage: 92 ML
     Route: 065
  56. CALCIUM GLUCONATE [Suspect]
     Active Substance: CALCIUM GLUCONATE
     Dosage: 92 ML
     Route: 065
  57. CALCIUM GLUCONATE [Suspect]
     Active Substance: CALCIUM GLUCONATE
     Dosage: 92 ML
     Route: 065
  58. CALCIUM GLUCONATE [Suspect]
     Active Substance: CALCIUM GLUCONATE
     Dosage: 92 ML
     Route: 065
  59. CALCIUM GLUCONATE [Suspect]
     Active Substance: CALCIUM GLUCONATE
     Dosage: 92 ML
     Route: 065
  60. MAGNESIUM SULFATE [Suspect]
     Active Substance: MAGNESIUM SULFATE
     Indication: Parenteral nutrition
     Dosage: 3.2 ML
     Route: 065
  61. MAGNESIUM SULFATE [Suspect]
     Active Substance: MAGNESIUM SULFATE
     Dosage: 3.2 ML
     Route: 065
  62. MAGNESIUM SULFATE [Suspect]
     Active Substance: MAGNESIUM SULFATE
     Dosage: 3.2 ML
     Route: 065
  63. MAGNESIUM SULFATE [Suspect]
     Active Substance: MAGNESIUM SULFATE
     Dosage: 3.2 ML
     Route: 065
  64. MAGNESIUM SULFATE [Suspect]
     Active Substance: MAGNESIUM SULFATE
     Dosage: 3.2 ML
     Route: 065
  65. MAGNESIUM SULFATE [Suspect]
     Active Substance: MAGNESIUM SULFATE
     Dosage: 3.2 ML
     Route: 065
  66. MAGNESIUM SULFATE [Suspect]
     Active Substance: MAGNESIUM SULFATE
     Dosage: 3.2 ML
     Route: 065
  67. MAGNESIUM SULFATE [Suspect]
     Active Substance: MAGNESIUM SULFATE
     Dosage: 3.2 ML
     Route: 065
  68. MAGNESIUM SULFATE [Suspect]
     Active Substance: MAGNESIUM SULFATE
     Dosage: 3.2 ML
     Route: 065
  69. KCL [Suspect]
     Active Substance: POTASSIUM CHLORIDE
     Indication: Parenteral nutrition
     Dosage: 116 ML
     Route: 065
  70. KCL [Suspect]
     Active Substance: POTASSIUM CHLORIDE
     Dosage: 116 ML
     Route: 065
  71. KCL [Suspect]
     Active Substance: POTASSIUM CHLORIDE
     Dosage: 116 ML
     Route: 065
  72. KCL [Suspect]
     Active Substance: POTASSIUM CHLORIDE
     Dosage: 116 ML
     Route: 065
  73. KCL [Suspect]
     Active Substance: POTASSIUM CHLORIDE
     Dosage: 116 ML
     Route: 065
  74. KCL [Suspect]
     Active Substance: POTASSIUM CHLORIDE
     Dosage: 116 ML
     Route: 065
  75. KCL [Suspect]
     Active Substance: POTASSIUM CHLORIDE
     Dosage: 116 ML
     Route: 065
  76. KCL [Suspect]
     Active Substance: POTASSIUM CHLORIDE
     Dosage: 116 ML
     Route: 065
  77. KCL [Suspect]
     Active Substance: POTASSIUM CHLORIDE
     Dosage: 116 ML
     Route: 065
  78. SODIUM CHLORIDE [Suspect]
     Active Substance: SODIUM CHLORIDE
     Indication: Parenteral nutrition
     Dosage: 11 ML
     Route: 065
  79. SODIUM CHLORIDE [Suspect]
     Active Substance: SODIUM CHLORIDE
     Dosage: 11 ML
     Route: 065
  80. SODIUM CHLORIDE [Suspect]
     Active Substance: SODIUM CHLORIDE
     Dosage: 11 ML
     Route: 065
  81. SODIUM CHLORIDE [Suspect]
     Active Substance: SODIUM CHLORIDE
     Dosage: 11 ML
     Route: 065
  82. SODIUM CHLORIDE [Suspect]
     Active Substance: SODIUM CHLORIDE
     Dosage: 11 ML
     Route: 065
  83. SODIUM CHLORIDE [Suspect]
     Active Substance: SODIUM CHLORIDE
     Dosage: 11 ML
     Route: 065
  84. SODIUM CHLORIDE [Suspect]
     Active Substance: SODIUM CHLORIDE
     Dosage: 11 ML
     Route: 065
  85. SODIUM CHLORIDE [Suspect]
     Active Substance: SODIUM CHLORIDE
     Dosage: 11 ML
     Route: 065
  86. SODIUM CHLORIDE [Suspect]
     Active Substance: SODIUM CHLORIDE
     Dosage: 11 ML
     Route: 065
  87. PHOCYTAN [Suspect]
     Active Substance: .ALPHA.-GLUCOSE-1-PHOSPHATE DISODIUM TETRAHYDRATE
     Indication: Parenteral nutrition
     Dosage: 98 ML
     Route: 065
  88. PHOCYTAN [Suspect]
     Active Substance: .ALPHA.-GLUCOSE-1-PHOSPHATE DISODIUM TETRAHYDRATE
     Dosage: 98 ML
     Route: 065
  89. PHOCYTAN [Suspect]
     Active Substance: .ALPHA.-GLUCOSE-1-PHOSPHATE DISODIUM TETRAHYDRATE
     Dosage: 98 ML
     Route: 065
  90. PHOCYTAN [Suspect]
     Active Substance: .ALPHA.-GLUCOSE-1-PHOSPHATE DISODIUM TETRAHYDRATE
     Dosage: 98 ML
     Route: 065
  91. PHOCYTAN [Suspect]
     Active Substance: .ALPHA.-GLUCOSE-1-PHOSPHATE DISODIUM TETRAHYDRATE
     Dosage: 98 ML
     Route: 065
  92. PHOCYTAN [Suspect]
     Active Substance: .ALPHA.-GLUCOSE-1-PHOSPHATE DISODIUM TETRAHYDRATE
     Dosage: 98 ML
     Route: 065
  93. PHOCYTAN [Suspect]
     Active Substance: .ALPHA.-GLUCOSE-1-PHOSPHATE DISODIUM TETRAHYDRATE
     Dosage: 98 ML
     Route: 065
  94. PHOCYTAN [Suspect]
     Active Substance: .ALPHA.-GLUCOSE-1-PHOSPHATE DISODIUM TETRAHYDRATE
     Dosage: 98 ML
     Route: 065
  95. PHOCYTAN [Suspect]
     Active Substance: .ALPHA.-GLUCOSE-1-PHOSPHATE DISODIUM TETRAHYDRATE
     Dosage: 98 ML
     Route: 065
  96. UNSPECIFIED INGREDIENT [Suspect]
     Active Substance: UNSPECIFIED INGREDIENT
     Indication: Parenteral nutrition
     Dosage: 11 ML
     Route: 065
  97. UNSPECIFIED INGREDIENT [Suspect]
     Active Substance: UNSPECIFIED INGREDIENT
     Dosage: 11 ML
     Route: 065
  98. UNSPECIFIED INGREDIENT [Suspect]
     Active Substance: UNSPECIFIED INGREDIENT
     Dosage: 11 ML
     Route: 065
  99. UNSPECIFIED INGREDIENT [Suspect]
     Active Substance: UNSPECIFIED INGREDIENT
     Dosage: 11 ML
     Route: 065
  100. UNSPECIFIED INGREDIENT [Suspect]
     Active Substance: UNSPECIFIED INGREDIENT
     Dosage: 11 ML
     Route: 065
  101. UNSPECIFIED INGREDIENT [Suspect]
     Active Substance: UNSPECIFIED INGREDIENT
     Dosage: 11 ML
     Route: 065
  102. UNSPECIFIED INGREDIENT [Suspect]
     Active Substance: UNSPECIFIED INGREDIENT
     Dosage: 11 ML
     Route: 065
  103. UNSPECIFIED INGREDIENT [Suspect]
     Active Substance: UNSPECIFIED INGREDIENT
     Dosage: 11 ML
     Route: 065
  104. UNSPECIFIED INGREDIENT [Suspect]
     Active Substance: UNSPECIFIED INGREDIENT
     Dosage: 11 ML
     Route: 065
  105. IRON\MINERALS\POTASSIUM IOD\SODIUM FLUORIDE\SODIUM MOLYBDATE\SODIUM SE [Suspect]
     Active Substance: IRON\MINERALS\POTASSIUM IOD\SODIUM FLUORIDE\SODIUM MOLYBDATE\SODIUM SELENITE\ZINC
     Indication: Parenteral nutrition
     Dosage: 11 ML
     Route: 065
  106. IRON\MINERALS\POTASSIUM IOD\SODIUM FLUORIDE\SODIUM MOLYBDATE\SODIUM SE [Suspect]
     Active Substance: IRON\MINERALS\POTASSIUM IOD\SODIUM FLUORIDE\SODIUM MOLYBDATE\SODIUM SELENITE\ZINC
     Dosage: 11 ML
     Route: 065
  107. IRON\MINERALS\POTASSIUM IOD\SODIUM FLUORIDE\SODIUM MOLYBDATE\SODIUM SE [Suspect]
     Active Substance: IRON\MINERALS\POTASSIUM IOD\SODIUM FLUORIDE\SODIUM MOLYBDATE\SODIUM SELENITE\ZINC
     Dosage: 11 ML
     Route: 065
  108. IRON\MINERALS\POTASSIUM IOD\SODIUM FLUORIDE\SODIUM MOLYBDATE\SODIUM SE [Suspect]
     Active Substance: IRON\MINERALS\POTASSIUM IOD\SODIUM FLUORIDE\SODIUM MOLYBDATE\SODIUM SELENITE\ZINC
     Dosage: 11 ML
     Route: 065
  109. OMEGAVEN [Suspect]
     Active Substance: FISH OIL
     Indication: Parenteral nutrition
     Dosage: 129 ML
     Route: 065
  110. OMEGAVEN [Suspect]
     Active Substance: FISH OIL
     Dosage: 129 ML
     Route: 065
  111. OMEGAVEN [Suspect]
     Active Substance: FISH OIL
     Dosage: 129 ML
     Route: 065
  112. OMEGAVEN [Suspect]
     Active Substance: FISH OIL
     Dosage: 129 ML
     Route: 065
  113. OMEGAVEN [Suspect]
     Active Substance: FISH OIL
     Dosage: 129 ML
     Route: 065
  114. OMEGAVEN [Suspect]
     Active Substance: FISH OIL
     Dosage: 129 ML
     Route: 065
  115. OMEGAVEN [Suspect]
     Active Substance: FISH OIL
     Dosage: 129 ML
     Route: 065
  116. OMEGAVEN [Suspect]
     Active Substance: FISH OIL
     Dosage: 129 ML
     Route: 065
  117. OMEGAVEN [Suspect]
     Active Substance: FISH OIL
     Dosage: 129 ML
     Route: 065
  118. OMEGAVEN [Suspect]
     Active Substance: FISH OIL
     Dosage: 129 ML
     Route: 065
  119. OMEGAVEN [Suspect]
     Active Substance: FISH OIL
     Dosage: 129 ML
     Route: 065
  120. OMEGAVEN [Suspect]
     Active Substance: FISH OIL
     Dosage: 129 ML
     Route: 065
  121. OMEGAVEN [Suspect]
     Active Substance: FISH OIL
     Dosage: 129 ML
     Route: 065
  122. VITAMIN K [Suspect]
     Active Substance: PHYTONADIONE
     Indication: Parenteral nutrition
     Dosage: 1.1 ML
     Route: 065
  123. VITAMIN K [Suspect]
     Active Substance: PHYTONADIONE
     Dosage: 1.1 ML
     Route: 065
  124. FAMOTIDINE [Suspect]
     Active Substance: FAMOTIDINE
     Indication: Parenteral nutrition
     Dosage: 5.4 ML
     Route: 065
  125. FAMOTIDINE [Suspect]
     Active Substance: FAMOTIDINE
     Dosage: 5.4 ML
     Route: 065
  126. FAMOTIDINE [Suspect]
     Active Substance: FAMOTIDINE
     Dosage: 5.4 ML
     Route: 065
  127. FAMOTIDINE [Suspect]
     Active Substance: FAMOTIDINE
     Dosage: 5.4 ML
     Route: 065
  128. FAMOTIDINE [Suspect]
     Active Substance: FAMOTIDINE
     Dosage: 5.4 ML
     Route: 065
  129. FAMOTIDINE [Suspect]
     Active Substance: FAMOTIDINE
     Dosage: 5.4 ML
     Route: 065
  130. FAMOTIDINE [Suspect]
     Active Substance: FAMOTIDINE
     Dosage: 5.4 ML
     Route: 065
  131. FAMOTIDINE [Suspect]
     Active Substance: FAMOTIDINE
     Dosage: 5.4 ML
     Route: 065
  132. FAMOTIDINE [Suspect]
     Active Substance: FAMOTIDINE
     Dosage: 5.4 ML
     Route: 065

REACTIONS (1)
  - Sepsis [Unknown]
